FAERS Safety Report 20336769 (Version 2)
Quarter: 2022Q1

REPORT INFORMATION
  Report Type: Report from Study
  Country: IT (occurrence: IT)
  Receive Date: 20220114
  Receipt Date: 20220118
  Transmission Date: 20220423
  Serious: Yes (Death, Hospitalization)
  Sender: FDA-Public Use
  Company Number: IT-PFIZER INC-202200066151

PATIENT
  Age: 75 Year
  Sex: Male
  Weight: 56 kg

DRUGS (1)
  1. TAFAMIDIS [Suspect]
     Active Substance: TAFAMIDIS
     Indication: Cardiomyopathy
     Dosage: 1 DF, 1X/DAY
     Route: 048
     Dates: start: 20200525

REACTIONS (2)
  - Cardiac failure acute [Fatal]
  - COVID-19 [Unknown]

NARRATIVE: CASE EVENT DATE: 20211219
